FAERS Safety Report 9796088 (Version 1)
Quarter: 2014Q1

REPORT INFORMATION
  Report Type: Report from Study
  Country: US (occurrence: US)
  Receive Date: 20140103
  Receipt Date: 20140103
  Transmission Date: 20141002
  Serious: Yes (Hospitalization)
  Sender: FDA-Public Use
  Company Number: US-ACTELION-A-US2013-93088

PATIENT
  Age: 52 Year
  Sex: Female

DRUGS (3)
  1. VELETRI [Suspect]
     Indication: PULMONARY ARTERIAL HYPERTENSION
     Dosage: 40.57 NG/KG, PER MIN
     Route: 041
     Dates: start: 20120511
  2. LETAIRIS [Concomitant]
  3. COUMADIN [Concomitant]

REACTIONS (1)
  - Pneumonia [Unknown]
